FAERS Safety Report 8224769-3 (Version None)
Quarter: 2012Q1

REPORT INFORMATION
  Report Type: 
  Country: None (occurrence: None)
  Receive Date: 20120321
  Receipt Date: 20120319
  Transmission Date: 20120608
  Serious: Yes (Hospitalization, Other)
  Sender: FDA-Public Use
  Company Number: PHEH2012US006155

PATIENT
  Sex: Male

DRUGS (7)
  1. FLUTICASONE FUROATE [Concomitant]
     Dosage: UNK UKN, UNK
  2. WARFARIN SODIUM [Concomitant]
     Dosage: 2.5 MG, UNK
  3. DIGOXIN [Concomitant]
     Dosage: 1 DF, BID
  4. MASIEUM [Concomitant]
     Dosage: UNK UKN, UNK
  5. SOTALOL HCL [Concomitant]
     Dosage: 120 MG, UNK
  6. DIOVAN HCT [Suspect]
     Dosage: 1 DF(320/12.5MG) QD
  7. PLAVIX [Concomitant]
     Dosage: UNK UKN, UNK

REACTIONS (3)
  - LUNG NEOPLASM MALIGNANT [None]
  - HYPOACUSIS [None]
  - BLADDER CANCER [None]
